FAERS Safety Report 5403936-8 (Version None)
Quarter: 2007Q3

REPORT INFORMATION
  Report Type: 
  Country: None (occurrence: None)
  Receive Date: 20070731
  Receipt Date: 20070731
  Transmission Date: 20080115
  Serious: Yes (Other)
  Sender: FDA-Public Use
  Company Number: None

PATIENT
  Age: 61 Year
  Sex: Male
  Weight: 97.5234 kg

DRUGS (1)
  1. TOPROL-XL [Suspect]
     Indication: VENTRICULAR EXTRASYSTOLES
     Dosage: 100 MG DAILY PO
     Route: 048
     Dates: start: 20070725, end: 20070730

REACTIONS (11)
  - ABNORMAL DREAMS [None]
  - APATHY [None]
  - DIARRHOEA [None]
  - DISORIENTATION [None]
  - DIZZINESS [None]
  - HYPERHIDROSIS [None]
  - INITIAL INSOMNIA [None]
  - NAUSEA [None]
  - SYNCOPE [None]
  - TEMPERATURE INTOLERANCE [None]
  - TINNITUS [None]
